FAERS Safety Report 15794463 (Version 4)
Quarter: 2019Q1

REPORT INFORMATION
  Report Type: Spontaneous
  Country: FR (occurrence: FR)
  Receive Date: 20190107
  Receipt Date: 20190306
  Transmission Date: 20190417
  Serious: Yes (Death, Hospitalization, Other)
  Sender: FDA-Public Use
  Company Number: FR-PFIZER INC-2018532167

PATIENT
  Age: 61 Year
  Sex: Male
  Weight: 136 kg

DRUGS (9)
  1. TRAMADOL + ACETAMINOFEN [Concomitant]
     Active Substance: ACETAMINOPHEN\TRAMADOL
     Dosage: UNK
  2. METHOTREXATE SODIUM. [Suspect]
     Active Substance: METHOTREXATE SODIUM
     Indication: ALVEOLITIS ALLERGIC
     Dosage: UNK
     Dates: start: 201305, end: 201311
  3. METHOTREXATE SODIUM. [Suspect]
     Active Substance: METHOTREXATE SODIUM
     Indication: IMMUNOSUPPRESSANT DRUG THERAPY
  4. PERINDOPRIL [Concomitant]
     Active Substance: PERINDOPRIL
     Dosage: UNK
  5. ZOPICLONE [Concomitant]
     Active Substance: ZOPICLONE
     Dosage: UNK
  6. BISOPROLOL [Concomitant]
     Active Substance: BISOPROLOL
     Dosage: UNK
  7. METFORMIN [Concomitant]
     Active Substance: METFORMIN HYDROCHLORIDE
     Dosage: UNK
  8. ALPRAZOLAM. [Concomitant]
     Active Substance: ALPRAZOLAM
     Dosage: UNK
  9. FLUINDIONE [Concomitant]
     Active Substance: FLUINDIONE
     Dosage: UNK

REACTIONS (3)
  - Product use in unapproved indication [Unknown]
  - Immunosuppression [Fatal]
  - Mycobacterium avium complex infection [Fatal]

NARRATIVE: CASE EVENT DATE: 201305
